FAERS Safety Report 12709722 (Version 4)
Quarter: 2017Q1

REPORT INFORMATION
  Report Type: Report from Study
  Country: JP (occurrence: JP)
  Receive Date: 20160902
  Receipt Date: 20170302
  Transmission Date: 20170428
  Serious: Yes (Death, Other)
  Sender: FDA-Public Use
  Company Number: JP-ASTELLAS-2016JP014204AA

PATIENT
  Age: 65 Year
  Sex: Female
  Weight: 36 kg

DRUGS (18)
  1. TACROLIMUS. [Suspect]
     Active Substance: TACROLIMUS
     Indication: DERMATOMYOSITIS
     Route: 048
     Dates: start: 20151031, end: 20151108
  2. CEFAMEZIN ? [Concomitant]
     Indication: PROPHYLAXIS
     Route: 065
     Dates: start: 20151204, end: 20151204
  3. KENALOG [Concomitant]
     Active Substance: TRIAMCINOLONE ACETONIDE
     Indication: STOMATITIS
     Route: 049
     Dates: start: 20151104, end: 20151109
  4. BASEN                              /01290601/ [Concomitant]
     Active Substance: VOGLIBOSE
     Indication: HYPERGLYCAEMIA
     Dosage: 0.6 MG, ONCE DAILY
     Route: 065
     Dates: start: 20151126, end: 20151128
  5. HIRUDOID                           /00723701/ [Concomitant]
     Active Substance: PENTOSAN POLYSULFATE SODIUM
     Indication: DRY SKIN
     Route: 061
     Dates: start: 20151130, end: 20151209
  6. TACROLIMUS. [Suspect]
     Active Substance: TACROLIMUS
     Route: 048
     Dates: start: 20151114, end: 20151209
  7. OMEPRAZOLE. [Concomitant]
     Active Substance: OMEPRAZOLE
     Indication: PROPHYLAXIS
     Route: 065
     Dates: end: 20151204
  8. TAKEPRON [Concomitant]
     Active Substance: LANSOPRAZOLE
     Indication: PROPHYLAXIS
     Route: 048
     Dates: start: 20151104, end: 20151209
  9. TACROLIMUS. [Suspect]
     Active Substance: TACROLIMUS
     Indication: INTERSTITIAL LUNG DISEASE
     Route: 048
     Dates: start: 20151109, end: 20151113
  10. SOL-MELCORT [Concomitant]
     Active Substance: METHYLPREDNISOLONE SODIUM SUCCINATE
     Route: 065
     Dates: start: 20151101, end: 20151103
  11. AZUNOL                             /00317302/ [Concomitant]
     Indication: STOMATITIS
     Route: 061
     Dates: start: 20151108, end: 20151209
  12. PREDONINE                          /00016203/ [Concomitant]
     Active Substance: PREDNISOLONE SODIUM SUCCINATE
     Indication: PRODUCT USED FOR UNKNOWN INDICATION
     Route: 065
     Dates: start: 20151028, end: 20151031
  13. MEDICON                            /00048102/ [Concomitant]
     Active Substance: DEXTROMETHORPHAN HYDROBROMIDE
     Indication: INTERSTITIAL LUNG DISEASE
     Route: 048
     Dates: start: 20151106, end: 20151209
  14. BIO-THREE [Concomitant]
     Active Substance: HERBALS
     Indication: PROPHYLAXIS
     Route: 048
     Dates: start: 20151105, end: 20151209
  15. METGLUCO [Concomitant]
     Active Substance: METFORMIN HYDROCHLORIDE
     Indication: HYPERGLYCAEMIA
     Route: 048
     Dates: start: 20151128, end: 20151209
  16. PREDONINE [Suspect]
     Active Substance: PREDNISOLONE
     Route: 048
     Dates: start: 20151202, end: 20151209
  17. SOL-MELCORT [Concomitant]
     Active Substance: METHYLPREDNISOLONE SODIUM SUCCINATE
     Indication: PRODUCT USED FOR UNKNOWN INDICATION
     Route: 065
     Dates: start: 20151025, end: 20151027
  18. PREDONINE [Suspect]
     Active Substance: PREDNISOLONE
     Indication: PRODUCT USED FOR UNKNOWN INDICATION
     Route: 048
     Dates: start: 20151104, end: 20151201

REACTIONS (4)
  - Hyperglycaemia [Recovered/Resolved]
  - Stomatitis [Recovering/Resolving]
  - Metastases to liver [Fatal]
  - Dry skin [Recovering/Resolving]

NARRATIVE: CASE EVENT DATE: 20151104
